FAERS Safety Report 8154532-3 (Version None)
Quarter: 2012Q1

REPORT INFORMATION
  Report Type: 
  Country: None (occurrence: None)
  Receive Date: 20120215
  Receipt Date: 20120209
  Transmission Date: 20120608
  Serious: Yes (Hospitalization, Other)
  Sender: FDA-Public Use
  Company Number: 2009SP018943

PATIENT
  Age: 46 Year
  Sex: Female
  Weight: 86.1834 kg

DRUGS (7)
  1. OXYCODONE HCL [Concomitant]
  2. DAYQUIL [Concomitant]
  3. VALTREX [Concomitant]
  4. ENTEX SOLUTION [Concomitant]
  5. NUVARING [Suspect]
     Indication: OVARIAN CYST
     Dates: start: 20040826, end: 20051201
  6. NUVARING [Suspect]
     Indication: PREMENSTRUAL SYNDROME
     Dates: start: 20040826, end: 20051201
  7. MIDRIN [Concomitant]

REACTIONS (19)
  - OCCULT BLOOD POSITIVE [None]
  - MIGRAINE [None]
  - ADENOMA BENIGN [None]
  - PULMONARY ARTERY THROMBOSIS [None]
  - ARTERIOSCLEROSIS [None]
  - SYNCOPE [None]
  - HIATUS HERNIA [None]
  - CHOLELITHIASIS [None]
  - MITRAL VALVE INCOMPETENCE [None]
  - PULMONARY EMBOLISM [None]
  - CHOLECYSTITIS [None]
  - CONVULSION [None]
  - NAUSEA [None]
  - GASTROOESOPHAGEAL REFLUX DISEASE [None]
  - COLONIC POLYP [None]
  - CHOLESTEROSIS [None]
  - DIASTOLIC DYSFUNCTION [None]
  - PALPITATIONS [None]
  - UTERINE LEIOMYOMA [None]
